FAERS Safety Report 4975921-1 (Version None)
Quarter: 2006Q2

REPORT INFORMATION
  Report Type: 
  Country: None (occurrence: None)
  Receive Date: 20060406
  Receipt Date: 20060327
  Transmission Date: 20061013
  Serious: Yes (Other)
  Sender: FDA-Public Use
  Company Number: 200610090BBE

PATIENT
  Age: 13 Year
  Sex: Female

DRUGS (21)
  1. GAMUNEX [Suspect]
     Dosage: 10 G, NI, NI,
     Dates: start: 20060316
  2. GAMUNEX [Suspect]
     Dosage: 20 G, NI, NI
     Dates: start: 20060306
  3. GAMUNEX [Suspect]
     Dosage: 20 G, NI, NI
     Dates: start: 20060306
  4. GAMUNEX [Suspect]
     Dosage: 20 G, NI, NI
     Dates: start: 20060316
  5. GAMUNEX [Suspect]
     Dosage: 20 G, NI, NI
     Dates: start: 20060223
  6. GAMUNEX [Suspect]
     Dosage: 20 G, NI, NI
     Dates: start: 20060209
  7. GAMUNEX [Suspect]
     Dosage: 20 G, NI, NI
     Dates: start: 20051025
  8. GAMUNEX [Suspect]
     Dosage: 20 G, NI, NI
     Dates: start: 20051117
  9. GAMUNEX [Suspect]
     Dosage: 20 G, NI, NI
     Dates: start: 20050824
  10. GAMUNEX [Suspect]
     Dosage: 20 G, NI, NI
     Dates: start: 20050921
  11. GAMUNEX [Suspect]
     Dosage: 10 G, NI, NI
     Dates: start: 20050810
  12. GAMUNEX [Suspect]
     Dosage: 10 G, NI, NI
     Dates: start: 20050722
  13. GAMUNEX [Suspect]
     Dosage: 20 G, NI, NI
     Dates: start: 20050623
  14. GAMUNEX [Suspect]
     Dosage: 20 G, NI, NI
     Dates: start: 20050630
  15. GAMUNEX [Suspect]
     Dosage: 20 G, NI, NI
     Dates: start: 20050707
  16. GAMUNEX [Suspect]
     Dosage: 20 G, NI, NI
     Dates: start: 20050609
  17. GAMUNEX [Suspect]
     Dosage: 20 G, NI, NI
     Dates: start: 20050617
  18. GAMUNEX [Suspect]
     Dosage: 05 G, NI, NI
  19. GAMUNEX [Suspect]
     Dosage: 10 G, NI, NI
     Dates: start: 20050425
  20. WINRHO [Suspect]
     Dates: start: 20050412
  21. WINRHO [Suspect]
     Dates: start: 20050422

REACTIONS (3)
  - ANTI-HBC ANTIBODY POSITIVE [None]
  - HBV DNA INCREASED [None]
  - HEPATITIS B SURFACE ANTIGEN POSITIVE [None]
